FAERS Safety Report 7282886-9 (Version None)
Quarter: 2011Q1

REPORT INFORMATION
  Report Type: 
  Country: None (occurrence: None)
  Receive Date: 20110209
  Receipt Date: 20110201
  Transmission Date: 20110831
  Serious: Yes (Hospitalization, Other)
  Sender: FDA-Public Use
  Company Number: US-JNJFOC-20100804571

PATIENT
  Sex: Female

DRUGS (4)
  1. LEVOFLOXACIN [Suspect]
     Indication: DIVERTICULITIS
     Route: 048
  2. LEVOFLOXACIN [Suspect]
     Route: 048
  3. LISINOPRIL [Concomitant]
  4. LEVOFLOXACIN [Suspect]
     Route: 048

REACTIONS (2)
  - ROTATOR CUFF SYNDROME [None]
  - MENISCUS LESION [None]
